FAERS Safety Report 8008949-8 (Version None)
Quarter: 2011Q4

REPORT INFORMATION
  Report Type: 
  Country: None (occurrence: None)
  Receive Date: 20111227
  Receipt Date: 20111215
  Transmission Date: 20120403
  Serious: Yes (Other)
  Sender: FDA-Public Use
  Company Number: JP-ROCHE-1024101

PATIENT
  Age: 88 Year
  Sex: Male

DRUGS (2)
  1. MIRCERA [Suspect]
     Indication: NEPHROGENIC ANAEMIA
     Route: 065
     Dates: start: 20110901, end: 20111001
  2. MIRCERA [Suspect]
     Route: 065
     Dates: start: 20111101, end: 20111101

REACTIONS (2)
  - ANAEMIA [None]
  - LUNG NEOPLASM MALIGNANT [None]
